FAERS Safety Report 11875079 (Version 1)
Quarter: 2015Q4

REPORT INFORMATION
  Report Type: Spontaneous
  Country: US (occurrence: None)
  Receive Date: 20151228
  Receipt Date: 20151228
  Transmission Date: 20160305
  Serious: Yes (Hospitalization)
  Sender: FDA-Public Use
  Company Number: None

PATIENT
  Age: 77 Year
  Sex: Female
  Weight: 79.9 kg

DRUGS (1)
  1. PROPOFOL. [Suspect]
     Active Substance: PROPOFOL
     Route: 042
     Dates: start: 20151124, end: 20151124

REACTIONS (9)
  - Cardio-respiratory arrest [None]
  - Musculoskeletal chest pain [None]
  - Procedural complication [None]
  - Sedation [None]
  - Bradycardia [None]
  - Bronchospasm [None]
  - Respiratory depression [None]
  - Post procedural complication [None]
  - Small intestinal haemorrhage [None]

NARRATIVE: CASE EVENT DATE: 20151224
